FAERS Safety Report 13150019 (Version 3)
Quarter: 2017Q1

REPORT INFORMATION
  Report Type: Report from Study
  Country: US (occurrence: US)
  Receive Date: 20170125
  Receipt Date: 20170329
  Transmission Date: 20170428
  Serious: Yes (Hospitalization, Other)
  Sender: FDA-Public Use
  Company Number: US-PFIZER INC-2017026715

PATIENT
  Age: 62 Year
  Sex: Female

DRUGS (2)
  1. IBRANCE [Suspect]
     Active Substance: PALBOCICLIB
     Indication: BREAST CANCER
     Dosage: 100 MG, DAILY
     Route: 048
     Dates: start: 20161001, end: 20170316
  2. IBRANCE [Suspect]
     Active Substance: PALBOCICLIB
     Dosage: 75 MG, DAILY
     Route: 048
     Dates: start: 20170317

REACTIONS (13)
  - Fatigue [Recovering/Resolving]
  - Malaise [Unknown]
  - Neutrophil count decreased [Recovering/Resolving]
  - Decreased appetite [Recovering/Resolving]
  - Dry eye [Recovering/Resolving]
  - Dyspepsia [Unknown]
  - Neuropathy peripheral [Unknown]
  - Headache [Not Recovered/Not Resolved]
  - Constipation [Not Recovered/Not Resolved]
  - Neutropenia [Recovering/Resolving]
  - Epistaxis [Recovering/Resolving]
  - Bone pain [Unknown]
  - Contusion [Unknown]
